FAERS Safety Report 5800793-2 (Version None)
Quarter: 2008Q3

REPORT INFORMATION
  Report Type: 
  Country: None (occurrence: None)
  Receive Date: 20080703
  Receipt Date: 20080624
  Transmission Date: 20090109
  Serious: Yes (Hospitalization)
  Sender: FDA-Public Use
  Company Number: JP-MERCK-0806USA09007

PATIENT
  Age: 89 Year
  Sex: Female

DRUGS (2)
  1. HYZAAR [Suspect]
     Indication: HYPERTENSION
     Route: 048
     Dates: start: 20080530, end: 20080617
  2. NORVASC [Concomitant]
     Indication: HYPERTENSION
     Route: 048

REACTIONS (3)
  - BLOOD CREATININE INCREASED [None]
  - BLOOD URIC ACID INCREASED [None]
  - LOSS OF CONSCIOUSNESS [None]
